FAERS Safety Report 9843200 (Version 1)
Quarter: 2013Q4

REPORT INFORMATION
  Report Type: Spontaneous
  Country: US (occurrence: None)
  Receive Date: 20131219
  Receipt Date: 20131219
  Transmission Date: 20140711
  Serious: Yes (Death)
  Sender: FDA-Public Use
  Company Number: 163-20785-13022733

PATIENT
  Age: 82 Year
  Sex: Male

DRUGS (5)
  1. THALIDOMID [Suspect]
     Indication: TELANGIECTASIA
     Dosage: 50 MG, 1 IN 1 D, PO
     Route: 048
     Dates: start: 20120425
  2. ALLOPURINOL (ALLOPURINOL) [Concomitant]
  3. LASIX (FUROSEMIDE) [Concomitant]
  4. LIPITOR (ATORVASTATIN) [Concomitant]
  5. LOPRESSOR (METOPROLOL TARTRATE) [Concomitant]

REACTIONS (1)
  - Death [None]
